FAERS Safety Report 8576551-5 (Version None)
Quarter: 2012Q3

REPORT INFORMATION
  Report Type: 
  Country: None (occurrence: None)
  Receive Date: 20120725
  Receipt Date: 20120709
  Transmission Date: 20120928
  Serious: Yes (Hospitalization)
  Sender: FDA-Public Use
  Company Number: 2012AP002129

PATIENT
  Age: 16 Month
  Sex: Male

DRUGS (1)
  1. BACLOFEN [Suspect]
     Indication: CEREBRAL PALSY

REACTIONS (6)
  - OXYGEN SATURATION DECREASED [None]
  - TRANSPLANT REJECTION [None]
  - ADENOVIRAL HEPATITIS [None]
  - PULMONARY OEDEMA [None]
  - CYTOMEGALOVIRUS TEST POSITIVE [None]
  - TACHYPNOEA [None]
